FAERS Safety Report 17843048 (Version 4)
Quarter: 2020Q3

REPORT INFORMATION
  Report Type: Report from Study
  Country: US (occurrence: US)
  Receive Date: 20200530
  Receipt Date: 20200910
  Transmission Date: 20201103
  Serious: No
  Sender: FDA-Public Use
  Company Number: NVSC2020US149888

PATIENT
  Sex: Female

DRUGS (2)
  1. KISQALI [Suspect]
     Active Substance: RIBOCICLIB
     Indication: PRODUCT USED FOR UNKNOWN INDICATION
     Route: 048
  2. KISQALI [Suspect]
     Active Substance: RIBOCICLIB
     Route: 048

REACTIONS (11)
  - Pruritus [Recovered/Resolved]
  - Nausea [Unknown]
  - Dental discomfort [Unknown]
  - Dry skin [Recovered/Resolved]
  - Herpes zoster [Unknown]
  - Skin exfoliation [Recovered/Resolved]
  - Fungal infection [Unknown]
  - Limb discomfort [Unknown]
  - Headache [Unknown]
  - Weight decreased [Unknown]
  - Rash [Recovered/Resolved]
